FAERS Safety Report 6774147-9 (Version None)
Quarter: 2010Q2

REPORT INFORMATION
  Report Type: 
  Country: None (occurrence: None)
  Receive Date: 20100616
  Receipt Date: 20100616
  Transmission Date: 20101027
  Serious: Yes (Disabling, Other)
  Sender: FDA-Public Use
  Company Number: None

PATIENT
  Age: 72 Year
  Sex: Male
  Weight: 77.1115 kg

DRUGS (2)
  1. PRISTIQ [Suspect]
     Indication: ANXIETY
     Dosage: ONE DAILY PO
     Route: 048
     Dates: start: 20100101, end: 20100613
  2. PRISTIQ [Suspect]
     Indication: DEPRESSION
     Dosage: ONE DAILY PO
     Route: 048
     Dates: start: 20100101, end: 20100613

REACTIONS (2)
  - CEREBROVASCULAR ACCIDENT [None]
  - DEMENTIA ALZHEIMER'S TYPE [None]
